FAERS Safety Report 5342776-5 (Version None)
Quarter: 2007Q2

REPORT INFORMATION
  Report Type: 
  Country: None (occurrence: None)
  Receive Date: 20070601
  Receipt Date: 20070522
  Transmission Date: 20071010
  Serious: Yes (Other)
  Sender: FDA-Public Use
  Company Number: US-PFIZER INC-2007041992

PATIENT
  Age: 43 Year
  Sex: Male

DRUGS (7)
  1. CHANTIX [Suspect]
     Indication: SMOKING CESSATION THERAPY
  2. WELLBUTRIN [Interacting]
     Indication: DEPRESSION
  3. METFORMIN HCL [Concomitant]
  4. TRICOR [Concomitant]
  5. ALLEGRA [Concomitant]
  6. ALLERGY MEDICATION [Concomitant]
  7. CELEXA [Concomitant]

REACTIONS (6)
  - COGNITIVE DISORDER [None]
  - CRYING [None]
  - DEPRESSION [None]
  - DRUG INTERACTION [None]
  - IMPAIRED WORK ABILITY [None]
  - SUICIDAL IDEATION [None]
